FAERS Safety Report 20363409 (Version 2)
Quarter: 2022Q2

REPORT INFORMATION
  Report Type: Spontaneous
  Country: JP (occurrence: None)
  Receive Date: 20220121
  Receipt Date: 20220415
  Transmission Date: 20220721
  Serious: Yes (Hospitalization)
  Sender: FDA-Public Use
  Company Number: 2022A025339

PATIENT
  Age: 71 Year
  Sex: Male
  Weight: 56 kg

DRUGS (13)
  1. IMFINZI [Suspect]
     Active Substance: DURVALUMAB
     Indication: Non-small cell lung cancer
     Route: 041
     Dates: start: 20210910, end: 20210910
  2. NEXIUM [Concomitant]
     Active Substance: ESOMEPRAZOLE MAGNESIUM
     Dosage: AFTER BREAKFAST
     Route: 048
  3. OXYCODONE HYDROCHLORIDE [Concomitant]
     Active Substance: OXYCODONE HYDROCHLORIDE
     Dosage: AT 8 AM AND 8 PM
     Route: 048
     Dates: start: 20210719
  4. OXINORM [Concomitant]
     Indication: Analgesic therapy
     Dosage: AT THE TIME OF PAIN5.0MG UNKNOWN
     Route: 048
     Dates: start: 20210720
  5. ASPIRIN\CLOPIDOGREL BISULFATE [Concomitant]
     Active Substance: ASPIRIN\CLOPIDOGREL BISULFATE
     Dosage: AFTER BREAKFAST
     Route: 048
  6. ROSUVASTATIN CALCIUM [Concomitant]
     Active Substance: ROSUVASTATIN CALCIUM
     Dosage: AFTER BREAKFAST
     Route: 048
  7. LOXOPROFEN [Concomitant]
     Active Substance: LOXOPROFEN
     Dosage: AFTER EVERY MEAL
     Route: 048
     Dates: start: 20210721, end: 20210927
  8. CALONAL [Concomitant]
     Active Substance: ACETAMINOPHEN
     Dosage: AFTER EVERY MEAL
     Route: 048
     Dates: start: 20210720
  9. EZETIMIBE [Concomitant]
     Active Substance: EZETIMIBE
     Dosage: AFTER SUPPER
     Route: 048
  10. MAGNESIUM OXIDE [Concomitant]
     Active Substance: MAGNESIUM OXIDE
     Dosage: AFTER EVERY MEAL
     Route: 048
     Dates: start: 20210803
  11. SENNOSIDES [Concomitant]
     Active Substance: SENNOSIDES
     Indication: Constipation
     Dosage: AT THE TIME OF CONSTIPATION
     Route: 048
     Dates: start: 20210803
  12. HEPARINOID [Concomitant]
     Dosage: DOSE UNKNOWN, SEVERAL TIMES DAILY, APPLIED TO RED LESION UNKNOWN
     Route: 062
     Dates: start: 20210813
  13. CALCIUM POLYSTYRENE SULFONATE [Concomitant]
     Active Substance: CALCIUM POLYSTYRENE SULFONATE
     Dosage: AFTER EVERY MEAL5.0G ONCE/SINGLE ADMINISTRATION
     Route: 048
     Dates: start: 20210925

REACTIONS (1)
  - Cholangitis sclerosing [Recovering/Resolving]

NARRATIVE: CASE EVENT DATE: 20210928
